FAERS Safety Report 6279471-4 (Version None)
Quarter: 2009Q3

REPORT INFORMATION
  Report Type: 
  Country: None (occurrence: None)
  Receive Date: 20090721
  Receipt Date: 20090713
  Transmission Date: 20100115
  Serious: Yes (Death)
  Sender: FDA-Public Use
  Company Number: 2009JP004312

PATIENT
  Age: 52 Year
  Sex: Male

DRUGS (3)
  1. PROGRAF [Suspect]
     Indication: NEPHROTIC SYNDROME
  2. MYCOPHENOLATE MOFETIL [Concomitant]
  3. PREDNISOLONE [Concomitant]

REACTIONS (2)
  - MUCORMYCOSIS [None]
  - NOCARDIOSIS [None]
